FAERS Safety Report 7682641 (Version 7)
Quarter: 2013Q1

REPORT INFORMATION
  Report Type: Report from Study
  Country: DE (occurrence: DE)
  Receive Date: 20101124
  Receipt Date: 20130104
  Transmission Date: 20140127
  Serious: Yes (Life-Threatening, Hospitalization)
  Sender: FDA-Public Use
  Company Number: PHHY2010DE79213

PATIENT
  Sex: Female
  Weight: 53 kg

DRUGS (14)
  1. ACZ885 [Suspect]
     Indication: MUCKLE-WELLS SYNDROME
     Dosage: 150 MG, EVERY 8 WEEKS
     Route: 058
     Dates: start: 20081111
  2. ACZ885 [Suspect]
     Dosage: UNK
     Route: 058
     Dates: start: 20121016
  3. LEVOFLOXACIN [Suspect]
  4. CICLOSPORIN [Concomitant]
     Dosage: 75 MG, IN THE MORNING, 75/50MG AT NIGHT
  5. MYCOPHENOLATE MOFETIL [Concomitant]
     Dosage: 500 MG, TID; ONCE IN THE  MORNING, LUNCH AND EVENING EACH
  6. PREDNISONE [Concomitant]
     Dosage: 2.5 MG, BID; ONCE IN THE MORNING, ONCE IN THE EVENING
  7. BISOPROLOL [Concomitant]
     Dosage: 5 MG, BID; ONCE IN THE MORNING, ONCE IN THE EVENING
  8. CARMEN [Concomitant]
     Dosage: 10 MG, BID; HALF TABLET IN THE MORNING AND HALF TABLET IN THE EVENING
  9. CATAPRESAN [Concomitant]
     Dosage: 150 UG, BID; ONCE IN THE MORNING AND ONCE IN THE EVENING
  10. L-THYROXIN [Concomitant]
     Dosage: 100 UG, QD; ONCE IN THE MORNING
  11. PANTOZOL [Concomitant]
     Dosage: 40 MG, QD; ONCE DAILY
  12. MAGNESIUM VERLA [Concomitant]
  13. TOREM [Concomitant]
     Dosage: 5 MG, QD; ONCE IN THE MORNING
  14. ARANESP [Concomitant]

REACTIONS (11)
  - Anaemia [Recovered/Resolved]
  - Herpes simplex [Recovered/Resolved]
  - Blister [Recovered/Resolved]
  - Haemoglobin decreased [Recovered/Resolved]
  - Haematocrit decreased [Recovered/Resolved]
  - Red blood cell count decreased [Recovered/Resolved]
  - White blood cell count increased [Recovered/Resolved]
  - C-reactive protein increased [Recovered/Resolved]
  - Skin lesion [Recovered/Resolved]
  - Pyrexia [Recovered/Resolved]
  - Nasopharyngitis [Recovered/Resolved]
